FAERS Safety Report 9676675 (Version 1)
Quarter: 2013Q4

REPORT INFORMATION
  Report Type: Spontaneous
  Country: IR (occurrence: IR)
  Receive Date: 20131107
  Receipt Date: 20131107
  Transmission Date: 20140711
  Serious: Yes (Life-Threatening)
  Sender: FDA-Public Use
  Company Number: IR-SA-2013SA113761

PATIENT
  Age: 13 Year
  Sex: Male

DRUGS (3)
  1. LANTUS SOLOSTAR [Suspect]
     Indication: TYPE 1 DIABETES MELLITUS
     Dosage: DOSE:20 UNIT(S)
     Route: 058
     Dates: start: 20130802
  2. LANTUS SOLOSTAR [Suspect]
     Indication: TYPE 1 DIABETES MELLITUS
     Route: 058
  3. SOLOSTAR [Concomitant]

REACTIONS (4)
  - Abdominal pain [Recovered/Resolved]
  - Hypoglycaemia [Recovered/Resolved]
  - Convulsion [Recovered/Resolved]
  - Drug administration error [Unknown]
